FAERS Safety Report 22615071 (Version 3)
Quarter: 2023Q4

REPORT INFORMATION
  Report Type: Spontaneous
  Country: US (occurrence: US)
  Receive Date: 20230619
  Receipt Date: 20231211
  Transmission Date: 20240110
  Serious: No
  Sender: FDA-Public Use
  Company Number: US-JNJFOC-20230642301

PATIENT
  Sex: Female
  Weight: 90.8 kg

DRUGS (1)
  1. REMICADE [Suspect]
     Active Substance: INFLIXIMAB
     Indication: Inflammatory bowel disease
     Dosage: LAST ADMINISTRATION ON 31 MAY 2023
     Route: 065
     Dates: start: 20110204

REACTIONS (1)
  - Paternal exposure during pregnancy [Recovered/Resolved]
